FAERS Safety Report 4559200-2 (Version None)
Quarter: 2005Q1

REPORT INFORMATION
  Report Type: 
  Country: None (occurrence: None)
  Receive Date: 20050121
  Receipt Date: 20050121
  Transmission Date: 20050727
  Serious: Yes (Other)
  Sender: FDA-Public Use
  Company Number: None

PATIENT
  Age: 33 Year
  Sex: Female
  Weight: 58.9676 kg

DRUGS (4)
  1. DEPO-PROVERA [Suspect]
     Indication: PREGNANCY
     Dosage: ONCE    SUBCUTANEO
     Route: 058
     Dates: start: 20040917, end: 20041217
  2. DEPO-PROVERA [Suspect]
     Indication: PROPHYLAXIS
     Dosage: ONCE    SUBCUTANEO
     Route: 058
     Dates: start: 20040917, end: 20041217
  3. RITALIN [Concomitant]
  4. ATENOLOL [Concomitant]

REACTIONS (8)
  - ALOPECIA [None]
  - AMENORRHOEA [None]
  - LIBIDO DECREASED [None]
  - MARITAL PROBLEM [None]
  - MENTAL DISORDER [None]
  - MOOD SWINGS [None]
  - PERSONALITY CHANGE [None]
  - WEIGHT INCREASED [None]
